FAERS Safety Report 9586513 (Version 4)
Quarter: 2024Q4

REPORT INFORMATION
  Report Type: Spontaneous
  Country: US (occurrence: US)
  Receive Date: 20131003
  Receipt Date: 20241120
  Transmission Date: 20250114
  Serious: Yes (Congenital Anomaly)
  Sender: BOEHRINGER INGELHEIM
  Company Number: US-BOEHRINGER INGELHEIM GMBH, GERMANY-2013-BI-30319BI

PATIENT

DRUGS (8)
  1. TIPRANAVIR [Suspect]
     Active Substance: TIPRANAVIR
     Indication: Exposure during pregnancy
     Route: 064
  2. DARUNAVIR [Concomitant]
     Active Substance: DARUNAVIR
     Indication: Exposure during pregnancy
     Route: 064
  3. ETRAVIRINE [Concomitant]
     Active Substance: ETRAVIRINE
     Indication: Exposure during pregnancy
     Route: 064
  4. RALTEGRAVIR [Concomitant]
     Active Substance: RALTEGRAVIR
     Indication: Exposure during pregnancy
     Route: 064
  5. RITONAVIR [Concomitant]
     Active Substance: RITONAVIR
     Indication: Exposure during pregnancy
     Route: 064
  6. RITONAVIR [Concomitant]
     Active Substance: RITONAVIR
     Route: 065
  7. TRUVADA [Concomitant]
     Active Substance: EMTRICITABINE\TENOFOVIR DISOPROXIL FUMARATE
     Indication: Exposure during pregnancy
     Dosage: DAILY DOSE 1 TAB/CAPS
     Route: 064
  8. ZIDOVUDINE [Concomitant]
     Active Substance: ZIDOVUDINE
     Indication: Exposure during pregnancy
     Route: 064

REACTIONS (9)
  - Nervous system disorder [Unknown]
  - Lipodystrophy acquired [Unknown]
  - Genitalia external ambiguous [Unknown]
  - Exomphalos [Unknown]
  - Caudal regression syndrome [Unknown]
  - Meningomyelocele [Unknown]
  - Umbilical cord abnormality [Unknown]
  - Cloacal exstrophy [Unknown]
  - Bladder agenesis [Unknown]
